FAERS Safety Report 9613732 (Version 2)
Quarter: 2014Q2

REPORT INFORMATION
  Report Type: Spontaneous
  Country: US (occurrence: US)
  Receive Date: 20131010
  Receipt Date: 20140415
  Transmission Date: 20141212
  Serious: Yes (Hospitalization)
  Sender: FDA-Public Use
  Company Number: US-B.I. PHARMACEUTICALS,INC./RIDGEFIELD-2013-BI-31357BP

PATIENT
  Age: 74 Year
  Sex: Female
  Weight: 59.42 kg

DRUGS (13)
  1. PRADAXA [Suspect]
     Indication: ATRIAL FIBRILLATION
     Dosage: 300 MG
     Route: 048
     Dates: start: 20110325, end: 20120317
  2. PRADAXA [Suspect]
     Indication: CARDIAC VALVE DISEASE
  3. PRADAXA [Suspect]
     Indication: TRANSIENT ISCHAEMIC ATTACK
  4. TRICOR [Concomitant]
     Dosage: 225 MG
     Route: 065
  5. PROZAC [Concomitant]
     Dosage: 20 MG
     Route: 048
     Dates: start: 200611
  6. CRESTOR [Concomitant]
     Dosage: 10 MG
     Route: 048
  7. PENTASA [Concomitant]
     Route: 048
  8. DIAZEPAM [Concomitant]
     Route: 048
     Dates: start: 200605
  9. TRILIPIX [Concomitant]
     Dosage: 135 MG
     Route: 048
  10. MIRALAX [Concomitant]
     Dosage: 17 G
     Route: 048
  11. SOTALOL [Concomitant]
     Dosage: 160 MG
     Route: 048
     Dates: start: 201105
  12. ATENOLOL [Concomitant]
     Route: 048
     Dates: start: 200606
  13. PERCOCET [Concomitant]
     Route: 048

REACTIONS (1)
  - Lower gastrointestinal haemorrhage [Unknown]
